FAERS Safety Report 4407752-5 (Version None)
Quarter: 2004Q3

REPORT INFORMATION
  Report Type: 
  Country: None (occurrence: None)
  Receive Date: 20040721
  Receipt Date: 20040707
  Transmission Date: 20050211
  Serious: Yes (Other)
  Sender: FDA-Public Use
  Company Number: USA040671331

PATIENT
  Sex: Female

DRUGS (1)
  1. STRATTERA [Suspect]
     Dosage: 40 MG/1 DAY
     Dates: start: 20040522, end: 20040522

REACTIONS (11)
  - APHONIA [None]
  - BURN OESOPHAGEAL [None]
  - BURNING SENSATION [None]
  - DRUG INEFFECTIVE [None]
  - EAR PAIN [None]
  - FEAR [None]
  - FOREIGN BODY TRAUMA [None]
  - MARKEDLY REDUCED DIETARY INTAKE [None]
  - ORAL MUCOSAL BLISTERING [None]
  - PHARMACEUTICAL PRODUCT COMPLAINT [None]
  - SPUTUM DISCOLOURED [None]
